FAERS Safety Report 8398825-3 (Version None)
Quarter: 2012Q2

REPORT INFORMATION
  Report Type: 
  Country: None (occurrence: None)
  Receive Date: 20120531
  Receipt Date: 20120522
  Transmission Date: 20120825
  Serious: Yes (Hospitalization, Other)
  Sender: FDA-Public Use
  Company Number: FR-ASTRAZENECA-2012SE33024

PATIENT
  Age: 29173 Day
  Sex: Female

DRUGS (8)
  1. NEXIUM [Suspect]
     Route: 048
     Dates: start: 20120301, end: 20120419
  2. BISOPROLOL FUMARATE AND HYDROCHLOROTHIAZIDE [Concomitant]
     Dosage: 10 MG / 6.25 MG
  3. TRAMADOL HCL [Suspect]
     Route: 048
     Dates: start: 20120101, end: 20120419
  4. PIASCLEDINE [Concomitant]
  5. PREDNISOLONE [Suspect]
     Indication: BRONCHITIS
     Route: 048
     Dates: start: 20120417, end: 20120419
  6. ROCEPHIN [Suspect]
     Indication: BRONCHITIS
     Route: 030
     Dates: start: 20120417, end: 20120419
  7. CACIT VITAMIN B3 [Concomitant]
  8. LEVOTHYROXINE SODIUM [Concomitant]

REACTIONS (4)
  - DYSPNOEA [None]
  - ABNORMAL BEHAVIOUR [None]
  - CONFUSIONAL STATE [None]
  - HALLUCINATION, VISUAL [None]
